FAERS Safety Report 7878371-3 (Version None)
Quarter: 2011Q4

REPORT INFORMATION
  Report Type: 
  Country: None (occurrence: None)
  Receive Date: 20111101
  Receipt Date: 20111026
  Transmission Date: 20120403
  Serious: Yes (Hospitalization)
  Sender: FDA-Public Use
  Company Number: US-JNJFOC-20111011834

PATIENT
  Age: 77 Year
  Sex: Male
  Weight: 87 kg

DRUGS (4)
  1. TRAMADOL HCL [Suspect]
     Route: 048
  2. BACLOFEN [Suspect]
     Indication: TRIGEMINAL NEURALGIA
     Route: 048
  3. BACLOFEN [Suspect]
     Route: 048
  4. TRAMADOL HCL [Suspect]
     Indication: TRIGEMINAL NEURALGIA
     Route: 048

REACTIONS (2)
  - PAIN [None]
  - DEHYDRATION [None]
